FAERS Safety Report 23263092 (Version 1)
Quarter: 2023Q4

REPORT INFORMATION
  Report Type: Spontaneous
  Country: US (occurrence: US)
  Receive Date: 20231205
  Receipt Date: 20231205
  Transmission Date: 20240109
  Serious: No
  Sender: FDA-Public Use
  Company Number: US-STRIDES ARCOLAB LIMITED-2022SP017384

PATIENT
  Age: 7 Year
  Sex: Female

DRUGS (3)
  1. GABAPENTIN [Suspect]
     Active Substance: GABAPENTIN
     Indication: Erythromelalgia
     Dosage: 10 MILLIGRAM/KILOGRAM PER DAY (DIVIDED INTO 3 DOSES WITH A PLAN FOR TITRATION AS NEEDED WITH A MAXIM
     Route: 048
  2. GABAPENTIN [Suspect]
     Active Substance: GABAPENTIN
     Dosage: 300 MILLIGRAM, BID (300MG TWICE DAILY (12.5 MG/KG/DAY). HER SYMPTOMS WERE WELL CONTROLLED ON THIS RE
     Route: 048
  3. DIPHENHYDRAMINE [Concomitant]
     Active Substance: DIPHENHYDRAMINE
     Indication: Pruritus
     Dosage: UNK
     Route: 065

REACTIONS (1)
  - Off label use [Unknown]
